FAERS Safety Report 6639650-0 (Version None)
Quarter: 2010Q1

REPORT INFORMATION
  Report Type: 
  Country: None (occurrence: None)
  Receive Date: 20100315
  Receipt Date: 20100302
  Transmission Date: 20100710
  Serious: Yes (Other)
  Sender: FDA-Public Use
  Company Number: 1-21680538

PATIENT
  Sex: Female

DRUGS (3)
  1. ALOPRIM [Suspect]
  2. CLARITHROMYCIN [Suspect]
  3. LOXOPROFEN SODIUM [Suspect]

REACTIONS (1)
  - STEVENS-JOHNSON SYNDROME [None]
